FAERS Safety Report 8041783-1 (Version None)
Quarter: 2012Q1

REPORT INFORMATION
  Report Type: 
  Country: None (occurrence: None)
  Receive Date: 20120112
  Receipt Date: 20120105
  Transmission Date: 20120608
  Serious: Yes (Hospitalization)
  Sender: FDA-Public Use
  Company Number: CA-JNJFOC-20111002338

PATIENT
  Sex: Female
  Weight: 90.72 kg

DRUGS (5)
  1. PEPCID [Suspect]
     Indication: HYPERCHLORHYDRIA
     Route: 048
     Dates: start: 20110723, end: 20110723
  2. EFFEXOR [Concomitant]
     Indication: ANXIETY
     Dates: start: 19910101
  3. ACETAMINOPHEN [Suspect]
     Indication: PAIN
     Route: 048
     Dates: start: 20110723, end: 20110723
  4. PEPCID [Suspect]
     Route: 048
  5. ACETAMINOPHEN [Suspect]
     Route: 048

REACTIONS (12)
  - VOMITING [None]
  - HEART RATE DECREASED [None]
  - FEELING ABNORMAL [None]
  - MALAISE [None]
  - PRODUCT QUALITY ISSUE [None]
  - BLOOD PRESSURE DECREASED [None]
  - NAUSEA [None]
  - DIARRHOEA [None]
  - DIZZINESS [None]
  - SYNCOPE [None]
  - ABDOMINAL PAIN UPPER [None]
  - HEART RATE INCREASED [None]
